APPROVED DRUG PRODUCT: CEFUROXIME AXETIL
Active Ingredient: CEFUROXIME AXETIL
Strength: EQ 250MG BASE/5ML
Dosage Form/Route: FOR SUSPENSION;ORAL
Application: A065323 | Product #002
Applicant: SUN PHARMACEUTICAL INDUSTRIES LTD
Approved: Feb 5, 2008 | RLD: No | RS: No | Type: DISCN